FAERS Safety Report 8311519-5 (Version None)
Quarter: 2012Q2

REPORT INFORMATION
  Report Type: 
  Country: None (occurrence: None)
  Receive Date: 20120423
  Receipt Date: 20120417
  Transmission Date: 20120825
  Serious: Yes (Hospitalization)
  Sender: FDA-Public Use
  Company Number: WAES 1203USA01732

PATIENT
  Age: 70 Year
  Sex: Male

DRUGS (8)
  1. INSULIN DETEMIR UNK [Suspect]
     Indication: TYPE 2 DIABETES MELLITUS
     Dosage: 75 IU
  2. BLINDED THERAPY UNK [Suspect]
     Indication: TYPE 2 DIABETES MELLITUS
     Dates: start: 20101202
  3. ASPIRIN [Concomitant]
  4. ANGIOTENSIN AMIDE [Concomitant]
  5. CARVEDILOL [Concomitant]
  6. PRINIVIL [Suspect]
     Dosage: PO
     Route: 048
  7. LASIX [Suspect]
  8. INSULIN ASPART UNK [Suspect]
     Indication: TYPE 2 DIABETES MELLITUS
     Dosage: 65 IU

REACTIONS (14)
  - SHIFT TO THE LEFT [None]
  - HYPOTENSION [None]
  - RENAL FAILURE ACUTE [None]
  - CELLULITIS [None]
  - ANTIBIOTIC RESISTANT STAPHYLOCOCCUS TEST POSITIVE [None]
  - ANGINA PECTORIS [None]
  - DIZZINESS [None]
  - LEUKOCYTOSIS [None]
  - HYPERKALAEMIA [None]
  - ABDOMINAL PAIN [None]
  - DIARRHOEA [None]
  - NAUSEA [None]
  - CHILLS [None]
  - SYSTEMIC INFLAMMATORY RESPONSE SYNDROME [None]
